FAERS Safety Report 25810039 (Version 2)
Quarter: 2025Q3

REPORT INFORMATION
  Report Type: Spontaneous
  Country: US (occurrence: US)
  Receive Date: 20250917
  Receipt Date: 20250924
  Transmission Date: 20251021
  Serious: No
  Sender: ELI LILLY AND COMPANY
  Company Number: US-ELI_LILLY_AND_COMPANY-US202509007189

PATIENT
  Age: 58 Year
  Sex: Male

DRUGS (12)
  1. ZEPBOUND [Suspect]
     Active Substance: TIRZEPATIDE
     Indication: Weight control
     Route: 058
     Dates: start: 202504
  2. ZEPBOUND [Suspect]
     Active Substance: TIRZEPATIDE
     Indication: Weight control
     Route: 058
  3. ZEPBOUND [Suspect]
     Active Substance: TIRZEPATIDE
     Indication: Weight control
     Route: 058
  4. ZEPBOUND [Suspect]
     Active Substance: TIRZEPATIDE
     Indication: Weight control
     Route: 058
     Dates: start: 202508
  5. BUPROPION [Concomitant]
     Active Substance: BUPROPION
     Indication: Anxiety
  6. BUPROPION [Concomitant]
     Active Substance: BUPROPION
     Indication: Depression
  7. QUETIAPINE FUMARATE [Concomitant]
     Active Substance: QUETIAPINE FUMARATE
     Indication: Anxiety
  8. QUETIAPINE FUMARATE [Concomitant]
     Active Substance: QUETIAPINE FUMARATE
     Indication: Depression
  9. VENLAFAXINE [Concomitant]
     Active Substance: VENLAFAXINE HYDROCHLORIDE
     Indication: Anxiety
  10. VENLAFAXINE [Concomitant]
     Active Substance: VENLAFAXINE HYDROCHLORIDE
     Indication: Depression
  11. TAMSULOSIN [Concomitant]
     Active Substance: TAMSULOSIN
     Indication: Anxiety
  12. TAMSULOSIN [Concomitant]
     Active Substance: TAMSULOSIN
     Indication: Depression

REACTIONS (4)
  - Dehydration [Unknown]
  - Asthenopia [Unknown]
  - Vision blurred [Unknown]
  - Dizziness [Not Recovered/Not Resolved]
